FAERS Safety Report 6816085-9 (Version None)
Quarter: 2010Q3

REPORT INFORMATION
  Report Type: 
  Country: None (occurrence: None)
  Receive Date: 20100705
  Receipt Date: 20100624
  Transmission Date: 20110219
  Serious: No
  Sender: FDA-Public Use
  Company Number: 2008BI026077

PATIENT
  Age: 42 Year
  Sex: Female

DRUGS (3)
  1. TYSABRI [Suspect]
     Indication: MULTIPLE SCLEROSIS
     Route: 042
     Dates: start: 20050103, end: 20050207
  2. TYSABRI [Suspect]
     Route: 042
     Dates: start: 20080514
  3. AVONEX [Concomitant]
     Indication: MULTIPLE SCLEROSIS
     Route: 030

REACTIONS (8)
  - FUNGAL INFECTION [None]
  - GAIT DISTURBANCE [None]
  - HEADACHE [None]
  - INGUINAL HERNIA [None]
  - MIGRAINE [None]
  - PAIN IN EXTREMITY [None]
  - PHARYNGITIS [None]
  - THROAT IRRITATION [None]
